FAERS Safety Report 8297793-2 (Version None)
Quarter: 2012Q2

REPORT INFORMATION
  Report Type: 
  Country: None (occurrence: None)
  Receive Date: 20120417
  Receipt Date: 20120403
  Transmission Date: 20120825
  Serious: Yes (Hospitalization, Other)
  Sender: FDA-Public Use
  Company Number: ZOLP20120053

PATIENT
  Age: 27 Year
  Sex: Female

DRUGS (5)
  1. PREDNISOLONE [Concomitant]
  2. ZOLPIDEM TARTRATE [Suspect]
     Indication: INSOMNIA
     Dosage: 100-200 MG/DAY, UNK, UNKNOWN
  3. ZOLPIDEM TARTRATE [Suspect]
     Indication: MOOD SWINGS
     Dosage: 100-200 MG/DAY, UNK, UNKNOWN
  4. ZOLPIDEM TARTRATE [Suspect]
     Indication: ANXIETY
     Dosage: 100-200 MG/DAY, UNK, UNKNOWN
  5. METHYLPREDNISOLONE [Concomitant]

REACTIONS (14)
  - CATATONIA [None]
  - TACHYCARDIA [None]
  - INTENTIONAL DRUG MISUSE [None]
  - BLOOD PRESSURE INCREASED [None]
  - CONVULSION [None]
  - DRUG WITHDRAWAL SYNDROME [None]
  - ANKYLOSING SPONDYLITIS [None]
  - LEUKOCYTOSIS [None]
  - HAEMATURIA [None]
  - DROOLING [None]
  - HYPERHIDROSIS [None]
  - PYURIA [None]
  - PROTRUSION TONGUE [None]
  - THERAPY CESSATION [None]
